FAERS Safety Report 5697345-4 (Version None)
Quarter: 2008Q2

REPORT INFORMATION
  Report Type: 
  Country: None (occurrence: None)
  Receive Date: 20080404
  Receipt Date: 20080404
  Transmission Date: 20081010
  Serious: Yes (Life-Threatening, Hospitalization)
  Sender: FDA-Public Use
  Company Number: None

PATIENT
  Sex: Female
  Weight: 68 kg

DRUGS (1)
  1. BEVACIZUMAB , UNKNOWN STRENGTH, GENENTECH [Suspect]
     Indication: OVARIAN CANCER
     Dosage: Q 2WEEKS X 3 IV LAST DOSE (PATIENT'S THIRD) 1-28-2008
     Route: 042
     Dates: end: 20080128

REACTIONS (18)
  - BLEPHAROSPASM [None]
  - BLOOD CREATININE INCREASED [None]
  - CEREBELLAR ATAXIA [None]
  - CONFUSIONAL STATE [None]
  - CONVULSION [None]
  - DISORIENTATION [None]
  - EXTREMITY CONTRACTURE [None]
  - HAEMOGLOBIN DECREASED [None]
  - HAEMOLYTIC URAEMIC SYNDROME [None]
  - HEADACHE [None]
  - HYPERTENSION [None]
  - PHOTOPHOBIA [None]
  - RENAL IMPAIRMENT [None]
  - REVERSIBLE POSTERIOR LEUKOENCEPHALOPATHY SYNDROME [None]
  - THROMBOCYTOPENIA [None]
  - THROMBOTIC THROMBOCYTOPENIC PURPURA [None]
  - VISUAL DISTURBANCE [None]
  - VOMITING [None]
